FAERS Safety Report 7559918-3 (Version None)
Quarter: 2011Q2

REPORT INFORMATION
  Report Type: 
  Country: None (occurrence: None)
  Receive Date: 20110621
  Receipt Date: 20110607
  Transmission Date: 20111010
  Serious: Yes (Other)
  Sender: FDA-Public Use
  Company Number: PHHY2011DE51311

PATIENT
  Sex: Female

DRUGS (6)
  1. ESTRATEST [Suspect]
     Route: 062
     Dates: start: 19890101
  2. ACETYL SALICYLIC ACID COMPOUND TAB [Concomitant]
     Dosage: 100 MG, UNK
  3. PANTOPRAZOLE [Concomitant]
     Dosage: 20 MG, UNK
  4. ENALAPRIL MALEATE [Concomitant]
     Dosage: 15 MG, UNK
  5. METOPROLOLSUCCINAT [Concomitant]
     Dosage: 47.5 MG, UNK
  6. AMLODIPINE [Concomitant]
     Dosage: 5 MG, UNK

REACTIONS (2)
  - POLYCYTHAEMIA VERA [None]
  - HOT FLUSH [None]
